FAERS Safety Report 12998328 (Version 1)
Quarter: 2016Q4

REPORT INFORMATION
  Report Type: Spontaneous
  Country: US (occurrence: US)
  Receive Date: 20161205
  Receipt Date: 20161205
  Transmission Date: 20170207
  Serious: Yes (Hospitalization)
  Sender: FDA-Public Use
  Company Number: None

PATIENT
  Age: 62 Year
  Sex: Female
  Weight: 83.92 kg

DRUGS (7)
  1. CENTRUM SILVER [Concomitant]
     Active Substance: MINERALS\VITAMINS
  2. PREMARIN [Suspect]
     Active Substance: ESTROGENS, CONJUGATED
     Indication: MENOPAUSAL SYMPTOMS
     Dosage: 2XWEEK VAGINALLY WITH APPLIATOR
     Route: 067
     Dates: start: 20090619, end: 20141013
  3. SYNTHROID [Concomitant]
     Active Substance: LEVOTHYROXINE SODIUM
  4. VITAMIN B COMPLEX [Concomitant]
     Active Substance: CYANOCOBALAMIN\DEXPANTHENOL\NIACINAMIDE\PYRIDOXINE HYDROCHLORIDE\RIBOFLAVIN 5^-PHOSPHATE SODIUM\THIAMINE HYDROCHLORIDE\VITAMIN B COMPLEX
  5. BIOTIN [Concomitant]
     Active Substance: BIOTIN
  6. VITAMIN D [Concomitant]
     Active Substance: CHOLECALCIFEROL
  7. PREMARIN [Suspect]
     Active Substance: ESTROGENS, CONJUGATED
     Indication: PROPHYLAXIS URINARY TRACT INFECTION
     Dosage: 2XWEEK VAGINALLY WITH APPLIATOR
     Route: 067
     Dates: start: 20090619, end: 20141013

REACTIONS (2)
  - Drug interaction [None]
  - Breast cancer [None]

NARRATIVE: CASE EVENT DATE: 20141013
